FAERS Safety Report 21446315 (Version 1)
Quarter: 2022Q4

REPORT INFORMATION
  Report Type: Spontaneous
  Country: US (occurrence: US)
  Receive Date: 20221012
  Receipt Date: 20221012
  Transmission Date: 20230112
  Serious: No
  Sender: FDA-Public Use
  Company Number: US-SANOFI-01306496

PATIENT
  Age: 70 Year
  Sex: Male

DRUGS (1)
  1. SOLIQUA 100/33 [Suspect]
     Active Substance: INSULIN GLARGINE\LIXISENATIDE
     Indication: Diabetes mellitus
     Dosage: 15 UNITS OR SO, ONCE A WEEK OR AS NEEDED,
     Dates: start: 2022

REACTIONS (3)
  - Product storage error [Unknown]
  - Intentional product misuse [Unknown]
  - Device use issue [Unknown]
